FAERS Safety Report 8244549-2 (Version None)
Quarter: 2012Q1

REPORT INFORMATION
  Report Type: 
  Country: None (occurrence: None)
  Receive Date: 20120329
  Receipt Date: 20120323
  Transmission Date: 20120608
  Serious: Yes (Hospitalization)
  Sender: FDA-Public Use
  Company Number: US-ALEXION-A201200135

PATIENT
  Sex: Female

DRUGS (14)
  1. PREDNISONE TAB [Concomitant]
     Dosage: 5 MG, UNK
  2. BACTRIM [Concomitant]
     Indication: IMMUNE ENHANCEMENT THERAPY
     Dosage: 800/160 MG, 3 X WEEK
     Route: 048
  3. PREDNISONE TAB [Concomitant]
     Dosage: 10 MG, UNK
  4. PROTONIX [Concomitant]
     Dosage: 40 MG, BID
     Route: 048
  5. ATACAND [Concomitant]
     Indication: CARDIAC FAILURE CONGESTIVE
     Dosage: 8 MG, BID
     Route: 048
  6. ACYCLOVIR [Concomitant]
     Dosage: 400 MG, BID
     Route: 048
  7. FOLIC ACID [Concomitant]
     Dosage: 400 ?G, QD
     Route: 048
  8. SOLIRIS [Suspect]
     Indication: PAROXYSMAL NOCTURNAL HAEMOGLOBINURIA
     Dosage: 600 MG, QW
     Route: 042
     Dates: start: 20111128, end: 20111201
  9. ACTONEL [Concomitant]
     Dosage: 100 MG, QD
     Route: 048
  10. SIMVASTATIN [Concomitant]
     Dosage: 20 MG, QD
     Route: 048
  11. SOLIRIS [Suspect]
     Dosage: 900 MG, Q2W
     Route: 042
     Dates: start: 20111229
  12. RESTORIL [Concomitant]
     Indication: INSOMNIA
     Dosage: 15 MG, BID
     Route: 048
  13. CALCIUM + VITAMIN D [Concomitant]
     Dosage: 500 MG, BID
     Route: 048
  14. MULTI-VITAMIN [Concomitant]
     Dosage: UNK, QD
     Route: 048

REACTIONS (9)
  - PRURITUS [None]
  - PYREXIA [None]
  - NAUSEA [None]
  - OEDEMA PERIPHERAL [None]
  - HAEMOGLOBIN DECREASED [None]
  - DYSPNOEA [None]
  - CARDIAC FAILURE CONGESTIVE [None]
  - INJECTION SITE RASH [None]
  - COUGH [None]
